FAERS Safety Report 7916435-6 (Version None)
Quarter: 2011Q4

REPORT INFORMATION
  Report Type: 
  Country: None (occurrence: None)
  Receive Date: 20111116
  Receipt Date: 20111108
  Transmission Date: 20120403
  Serious: No
  Sender: FDA-Public Use
  Company Number: US-BIOGENIDEC-2011BI042804

PATIENT
  Sex: Female

DRUGS (1)
  1. AVONEX [Suspect]
     Indication: MULTIPLE SCLEROSIS
     Route: 030
     Dates: start: 20060706

REACTIONS (4)
  - FIBROMYALGIA [None]
  - MENTAL IMPAIRMENT [None]
  - GENERAL PHYSICAL HEALTH DETERIORATION [None]
  - PAIN [None]
